FAERS Safety Report 18883891 (Version 4)
Quarter: 2022Q2

REPORT INFORMATION
  Report Type: Spontaneous
  Country: JP (occurrence: JP)
  Receive Date: 20210211
  Receipt Date: 20220622
  Transmission Date: 20220721
  Serious: Yes (Hospitalization)
  Sender: FDA-Public Use
  Company Number: JP-JNJFOC-20200901600

PATIENT
  Age: 69 Year
  Sex: Female
  Weight: 43.5 kg

DRUGS (17)
  1. UPTRAVI [Suspect]
     Active Substance: SELEXIPAG
     Indication: Pulmonary arterial hypertension
     Route: 048
     Dates: start: 20180731, end: 20200717
  2. UPTRAVI [Suspect]
     Active Substance: SELEXIPAG
     Route: 048
     Dates: end: 20200801
  3. OPSUMIT [Suspect]
     Active Substance: MACITENTAN
     Indication: Pulmonary arterial hypertension
     Route: 048
     Dates: start: 20180920
  4. ADEMPAS [Suspect]
     Active Substance: RIOCIGUAT
     Indication: Pulmonary arterial hypertension
     Route: 065
     Dates: start: 20180618, end: 20200801
  5. ADEMPAS [Suspect]
     Active Substance: RIOCIGUAT
     Route: 065
  6. EPLERENONE [Concomitant]
     Active Substance: EPLERENONE
  7. TOLVAPTAN [Concomitant]
     Active Substance: TOLVAPTAN
  8. AZOSEMIDE [Concomitant]
     Active Substance: AZOSEMIDE
  9. FEBUXOSTAT [Concomitant]
     Active Substance: FEBUXOSTAT
  10. LEVOTHYROXINE [Concomitant]
     Active Substance: LEVOTHYROXINE
  11. POTASSIUM CHLORIDE [Concomitant]
     Active Substance: POTASSIUM CHLORIDE
  12. LIVACT [ISOLEUCINE;LEUCINE;VALINE] [Concomitant]
     Dates: end: 20181114
  13. BROTIZOLAM [Concomitant]
     Active Substance: BROTIZOLAM
  14. FUROSEMIDE [Concomitant]
     Active Substance: FUROSEMIDE
  15. WARFARIN [Concomitant]
     Active Substance: WARFARIN
  16. TRACLEER [Concomitant]
     Active Substance: BOSENTAN
     Indication: Pulmonary arterial hypertension
     Dates: end: 20180919
  17. TRICHLORMETHIAZIDE [Concomitant]
     Active Substance: TRICHLORMETHIAZIDE

REACTIONS (2)
  - Carbon dioxide increased [Recovered/Resolved]
  - Respiratory failure [Recovered/Resolved]

NARRATIVE: CASE EVENT DATE: 20200717
